FAERS Safety Report 10157683 (Version 4)
Quarter: 2014Q2

REPORT INFORMATION
  Report Type: Spontaneous
  Country: BR (occurrence: BR)
  Receive Date: 20140507
  Receipt Date: 20140624
  Transmission Date: 20141212
  Serious: Yes (Other)
  Sender: FDA-Public Use
  Company Number: BR-SA-2014SA055134

PATIENT
  Age: 68 Year
  Sex: Female
  Weight: 59 kg

DRUGS (6)
  1. LANTUS [Suspect]
     Indication: TYPE 1 DIABETES MELLITUS
     Dosage: DOSE: 20 IUS IN MORNING AND 20 IUS AT NIGHT
     Route: 058
     Dates: start: 2004
  2. DEVICE NOS [Concomitant]
     Indication: DEVICE THERAPY
     Dosage: START DATE: APPROXIMATELY 3 MONTHS AGO.
     Dates: start: 201401
  3. SOMALGIN CARDIO [Concomitant]
     Dosage: START DATE: JAN-2014 (3 MONTHS AGO).
     Route: 048
     Dates: start: 201401
  4. LIPITOR [Concomitant]
     Indication: BLOOD CHOLESTEROL
     Dosage: START DATE: APPROXIMATELY 15 YERAS AGO
     Route: 048
     Dates: start: 1999
  5. PURAN T4 [Concomitant]
     Indication: THYROID DISORDER
     Dosage: START DATE: APPROXIMATELY 20 YEARS AGO
     Route: 048
     Dates: start: 1994
  6. NOVORAPID [Concomitant]
     Indication: TYPE 1 DIABETES MELLITUS
     Dosage: DOSE: 36 IUS TOTAL (MORNING 10 IUS, LUNCH 12 IUS, DINER 14 IUS)
     Route: 058
     Dates: start: 2004

REACTIONS (4)
  - Vascular calcification [Recovered/Resolved]
  - Dyspnoea [Recovered/Resolved]
  - Fatigue [Recovered/Resolved]
  - Off label use [Unknown]
